FAERS Safety Report 16807973 (Version 2)
Quarter: 2019Q4

REPORT INFORMATION
  Report Type: Report from Study
  Country: None (occurrence: US)
  Receive Date: 20190915
  Receipt Date: 20191105
  Transmission Date: 20200122
  Serious: No
  Sender: FDA-Public Use
  Company Number: US-ABBVIE-19K-163-2919586-00

PATIENT
  Sex: Male

DRUGS (3)
  1. HUMIRA [Suspect]
     Active Substance: ADALIMUMAB
     Indication: HIDRADENITIS
     Dosage: CITRATE FREE
     Route: 058
     Dates: start: 2018
  2. LISINOPRIL. [Concomitant]
     Active Substance: LISINOPRIL
     Indication: PRODUCT USED FOR UNKNOWN INDICATION
  3. HUMIRA [Suspect]
     Active Substance: ADALIMUMAB
     Indication: PSORIASIS

REACTIONS (12)
  - Hepatic steatosis [Not Recovered/Not Resolved]
  - Neuropathy peripheral [Unknown]
  - Skin lesion [Unknown]
  - Injection site pain [Unknown]
  - Hypotension [Recovered/Resolved]
  - Liver disorder [Unknown]
  - Skin discolouration [Unknown]
  - Polyneuropathy [Not Recovered/Not Resolved]
  - Blood cholesterol increased [Unknown]
  - Blood glucose decreased [Not Recovered/Not Resolved]
  - Scar [Unknown]
  - Oral candidiasis [Not Recovered/Not Resolved]
